FAERS Safety Report 25682913 (Version 1)
Quarter: 2025Q3

REPORT INFORMATION
  Report Type: Spontaneous
  Country: EU (occurrence: EU)
  Receive Date: 20250814
  Receipt Date: 20250814
  Transmission Date: 20251020
  Serious: Yes (Death, Hospitalization, Other)
  Sender: MYLAN
  Company Number: None

PATIENT
  Age: 90 Year
  Sex: Male
  Weight: 67.4 kg

DRUGS (28)
  1. PANTOPRAZOLE [Suspect]
     Active Substance: PANTOPRAZOLE
     Indication: Melaena
     Dosage: 40 MILLIGRAM, QD
     Dates: start: 20250630, end: 20250715
  2. PANTOPRAZOLE [Suspect]
     Active Substance: PANTOPRAZOLE
     Dosage: 40 MILLIGRAM, QD
     Route: 048
     Dates: start: 20250630, end: 20250715
  3. PANTOPRAZOLE [Suspect]
     Active Substance: PANTOPRAZOLE
     Dosage: 40 MILLIGRAM, QD
     Route: 048
     Dates: start: 20250630, end: 20250715
  4. PANTOPRAZOLE [Suspect]
     Active Substance: PANTOPRAZOLE
     Dosage: 40 MILLIGRAM, QD
     Dates: start: 20250630, end: 20250715
  5. PANTOPRAZOLE [Suspect]
     Active Substance: PANTOPRAZOLE
     Indication: Melaena
     Dosage: 40 MILLIGRAM, BID
     Dates: start: 20250625, end: 20250630
  6. PANTOPRAZOLE [Suspect]
     Active Substance: PANTOPRAZOLE
     Dosage: 40 MILLIGRAM, BID
     Route: 042
     Dates: start: 20250625, end: 20250630
  7. PANTOPRAZOLE [Suspect]
     Active Substance: PANTOPRAZOLE
     Dosage: 40 MILLIGRAM, BID
     Route: 042
     Dates: start: 20250625, end: 20250630
  8. PANTOPRAZOLE [Suspect]
     Active Substance: PANTOPRAZOLE
     Dosage: 40 MILLIGRAM, BID
     Dates: start: 20250625, end: 20250630
  9. APIXABAN [Concomitant]
     Active Substance: APIXABAN
  10. APIXABAN [Concomitant]
     Active Substance: APIXABAN
     Route: 065
  11. APIXABAN [Concomitant]
     Active Substance: APIXABAN
     Route: 065
  12. APIXABAN [Concomitant]
     Active Substance: APIXABAN
  13. ALFUZOSIN HYDROCHLORIDE [Concomitant]
     Active Substance: ALFUZOSIN HYDROCHLORIDE
  14. ALFUZOSIN HYDROCHLORIDE [Concomitant]
     Active Substance: ALFUZOSIN HYDROCHLORIDE
     Route: 065
  15. ALFUZOSIN HYDROCHLORIDE [Concomitant]
     Active Substance: ALFUZOSIN HYDROCHLORIDE
     Route: 065
  16. ALFUZOSIN HYDROCHLORIDE [Concomitant]
     Active Substance: ALFUZOSIN HYDROCHLORIDE
  17. FENOFIBRATE [Concomitant]
     Active Substance: FENOFIBRATE
  18. FENOFIBRATE [Concomitant]
     Active Substance: FENOFIBRATE
     Route: 065
  19. FENOFIBRATE [Concomitant]
     Active Substance: FENOFIBRATE
     Route: 065
  20. FENOFIBRATE [Concomitant]
     Active Substance: FENOFIBRATE
  21. AMIODARONE [Concomitant]
     Active Substance: AMIODARONE
  22. AMIODARONE [Concomitant]
     Active Substance: AMIODARONE
     Route: 065
  23. AMIODARONE [Concomitant]
     Active Substance: AMIODARONE
     Route: 065
  24. AMIODARONE [Concomitant]
     Active Substance: AMIODARONE
  25. POTASSIUM CHLORIDE [Concomitant]
     Active Substance: POTASSIUM CHLORIDE
  26. POTASSIUM CHLORIDE [Concomitant]
     Active Substance: POTASSIUM CHLORIDE
     Route: 065
  27. POTASSIUM CHLORIDE [Concomitant]
     Active Substance: POTASSIUM CHLORIDE
     Route: 065
  28. POTASSIUM CHLORIDE [Concomitant]
     Active Substance: POTASSIUM CHLORIDE

REACTIONS (1)
  - Hyponatraemia [Fatal]

NARRATIVE: CASE EVENT DATE: 20250707
